FAERS Safety Report 13159976 (Version 1)
Quarter: 2017Q1

REPORT INFORMATION
  Report Type: Report from Study
  Country: IN (occurrence: IN)
  Receive Date: 20170127
  Receipt Date: 20170127
  Transmission Date: 20170428
  Serious: Yes (Death, Hospitalization)
  Sender: FDA-Public Use
  Company Number: PHHY2017IN011727

PATIENT
  Sex: Male
  Weight: 45 kg

DRUGS (1)
  1. TASIGNA [Suspect]
     Active Substance: NILOTINIB
     Indication: CHRONIC MYELOID LEUKAEMIA
     Dosage: 400 MG, BID
     Route: 048

REACTIONS (5)
  - Hepatic infection [Fatal]
  - Pneumonia [Fatal]
  - Kidney infection [Fatal]
  - Abdominal pain upper [Fatal]
  - Chronic myeloid leukaemia [Fatal]
